FAERS Safety Report 8477409-2 (Version None)
Quarter: 2012Q2

REPORT INFORMATION
  Report Type: 
  Country: None (occurrence: None)
  Receive Date: 20120629
  Receipt Date: 20120620
  Transmission Date: 20120825
  Serious: Yes (Hospitalization)
  Sender: FDA-Public Use
  Company Number: US-BAYER-2012-044445

PATIENT
  Age: 19 Year
  Sex: Female
  Weight: 61.224 kg

DRUGS (11)
  1. YASMIN [Suspect]
     Dosage: UNK
     Dates: start: 20060301, end: 20070701
  2. FERROUS SULFATE TAB [Concomitant]
     Dosage: 300 MG, DAILY
  3. AVELOX [Concomitant]
     Dosage: UNK, UNK, DAILY
  4. MORPHINE [Concomitant]
  5. ONDANSETRON [Concomitant]
     Dosage: 8 MG, UNK
     Dates: start: 20070710
  6. PERCOCET [Concomitant]
     Dosage: 5/325 MG 1-2 TABLETS Q 4 H P.R.N
  7. YASMIN [Suspect]
     Dosage: UNK
  8. TORADOL [Concomitant]
     Dosage: UNK
  9. YASMIN [Suspect]
     Dosage: UNK
  10. YASMIN [Suspect]
     Dosage: UNK
  11. LORTAB [Concomitant]

REACTIONS (4)
  - PAIN [None]
  - THROMBOSIS [None]
  - PULMONARY EMBOLISM [None]
  - INJURY [None]
